FAERS Safety Report 16660313 (Version 1)
Quarter: 2019Q3

REPORT INFORMATION
  Report Type: Spontaneous
  Country: FR (occurrence: FR)
  Receive Date: 20190802
  Receipt Date: 20190802
  Transmission Date: 20191004
  Serious: Yes (Death, Other)
  Sender: FDA-Public Use
  Company Number: FR-AUROBINDO-AUR-APL-2019-044630

PATIENT

DRUGS (7)
  1. ESOMEPRAZOLE ARROW [Concomitant]
     Active Substance: ESOMEPRAZOLE MAGNESIUM
     Indication: VARICES OESOPHAGEAL
     Dosage: UNK
     Route: 048
     Dates: start: 2019
  2. ALLOPURINOL BIOGARAN [Suspect]
     Active Substance: ALLOPURINOL
     Indication: GOUT
     Dosage: 300 MILLIGRAM, DAILY
     Route: 048
     Dates: start: 2019
  3. LASILIX SPECIAL [Concomitant]
     Active Substance: FUROSEMIDE
     Indication: OEDEMA
     Dosage: 500 MILLIGRAM, DAILY
     Route: 048
     Dates: start: 2019
  4. TAMSULOSINE ALMUS [Concomitant]
     Indication: BENIGN PROSTATIC HYPERPLASIA
     Dosage: 0.4 MILLIGRAM, DAILY
     Route: 048
     Dates: start: 2019
  5. NAPROXEN SODIQUE ARROW 550 MG FILM COATED TABLETS [Suspect]
     Active Substance: NAPROXEN SODIUM
     Indication: PAIN
     Dosage: 1100 MILLIGRAM, DAILY
     Route: 048
     Dates: start: 20190325, end: 20190402
  6. PROPRANOLOL [Concomitant]
     Active Substance: PROPRANOLOL HYDROCHLORIDE
     Indication: PRODUCT USED FOR UNKNOWN INDICATION
     Dosage: 160 MILLIGRAM, DAILY
     Route: 048
     Dates: start: 2019
  7. TRAMADOL ARROW L.P. 200 MG PROLONGED RELEASE TABLETS USP 200MG [Suspect]
     Active Substance: TRAMADOL HYDROCHLORIDE
     Indication: PAIN
     Dosage: 400 MILLIGRAM, DAILY
     Route: 048
     Dates: start: 20190325, end: 20190402

REACTIONS (1)
  - Acute kidney injury [Fatal]

NARRATIVE: CASE EVENT DATE: 20190329
